FAERS Safety Report 5340428-9 (Version None)
Quarter: 2007Q2

REPORT INFORMATION
  Report Type: 
  Country: None (occurrence: None)
  Receive Date: 20070405
  Receipt Date: 20061212
  Transmission Date: 20071010
  Serious: No
  Sender: FDA-Public Use
  Company Number: US20061200203

PATIENT
  Age: 41 Year
  Sex: Male

DRUGS (3)
  1. CYMBALTA [Suspect]
     Indication: DEPRESSION
     Dosage: SEE IMAGE
     Dates: end: 20061207
  2. CYMBALTA [Suspect]
     Indication: DEPRESSION
     Dosage: SEE IMAGE
  3. CYMBALTA [Suspect]
     Indication: DEPRESSION
     Dosage: SEE IMAGE
     Dates: start: 20061001

REACTIONS (8)
  - APATHY [None]
  - HEADACHE [None]
  - HYPERSOMNIA [None]
  - MENTAL IMPAIRMENT [None]
  - NAUSEA [None]
  - OVERDOSE [None]
  - PARAESTHESIA [None]
  - SUICIDAL IDEATION [None]
